FAERS Safety Report 19460270 (Version 3)
Quarter: 2021Q4

REPORT INFORMATION
  Report Type: Report from Study
  Country: JP (occurrence: JP)
  Receive Date: 20210625
  Receipt Date: 20211223
  Transmission Date: 20220303
  Serious: Yes (Hospitalization, Other)
  Sender: FDA-Public Use
  Company Number: JP-KYOWAKIRIN-2021AKK011009

PATIENT
  Age: 57 Year
  Sex: Female

DRUGS (29)
  1. DARBEPOETIN ALFA [Suspect]
     Active Substance: DARBEPOETIN ALFA
     Indication: Myelodysplastic syndrome
     Dosage: 240 MICROGRAM, QWK
     Route: 058
     Dates: start: 20150312, end: 20150430
  2. DARBEPOETIN ALFA [Suspect]
     Active Substance: DARBEPOETIN ALFA
     Dosage: 240 MICROGRAM, QWK
     Route: 058
     Dates: start: 20150604, end: 20161117
  3. ACLARUBICIN HYDROCHLORIDE [Suspect]
     Active Substance: ACLARUBICIN HYDROCHLORIDE
     Indication: Product used for unknown indication
     Dosage: 20 MILLIGRAM
     Route: 065
     Dates: start: 20170106, end: 20170107
  4. ACLARUBICIN HYDROCHLORIDE [Suspect]
     Active Substance: ACLARUBICIN HYDROCHLORIDE
     Dosage: 20 MILLIGRAM
     Route: 065
     Dates: start: 20170302, end: 20170305
  5. VIDAZA [Suspect]
     Active Substance: AZACITIDINE
     Indication: Myelodysplastic syndrome
     Dosage: 100 MG
     Route: 065
     Dates: start: 20161124, end: 20161130
  6. VIDAZA [Suspect]
     Active Substance: AZACITIDINE
     Dosage: 100 MG
     Route: 065
     Dates: start: 20170204, end: 20170210
  7. CYTARABINE [Suspect]
     Active Substance: CYTARABINE
     Indication: Product used for unknown indication
     Dosage: 28 MG
     Route: 065
     Dates: start: 20170106, end: 20170114
  8. CYTARABINE [Suspect]
     Active Substance: CYTARABINE
     Dosage: 28 MG
     Route: 065
     Dates: start: 20170302
  9. CYTARABINE [Suspect]
     Active Substance: CYTARABINE
     Dosage: 28 MG
     Route: 065
     Dates: start: 20170427, end: 20170510
  10. CYTARABINE [Suspect]
     Active Substance: CYTARABINE
     Dosage: 28 MG
     Route: 065
     Dates: start: 20170609, end: 20170622
  11. CYTARABINE [Suspect]
     Active Substance: CYTARABINE
     Dosage: 28 MG
     Route: 065
     Dates: start: 20170711, end: 20170720
  12. METHIMAZOLE [Concomitant]
     Active Substance: METHIMAZOLE
     Indication: Hyperthyroidism
     Dosage: 10 MILLIGRAM
     Route: 048
     Dates: start: 20121211
  13. CYCLOSPORINE [Concomitant]
     Active Substance: CYCLOSPORINE
     Indication: Myelodysplastic syndrome
     Dosage: 200 MILLIGRAM
     Route: 048
     Dates: start: 20130430, end: 20161208
  14. SULFAMETHOXAZOLE\TRIMETHOPRIM [Concomitant]
     Active Substance: SULFAMETHOXAZOLE\TRIMETHOPRIM
     Dosage: 1 DOSAGE FORM
     Route: 048
     Dates: start: 20130430
  15. FLUCONAZOLE [Concomitant]
     Active Substance: FLUCONAZOLE
     Dosage: 100 MILLIGRAM
     Route: 048
     Dates: start: 20130430
  16. EXJADE [Concomitant]
     Active Substance: DEFERASIROX
     Indication: Myelodysplastic syndrome
     Dosage: 500 MILLIGRAM
     Route: 048
     Dates: start: 20130305
  17. MAGNESIUM OXIDE [Concomitant]
     Active Substance: MAGNESIUM OXIDE
     Dosage: 1500 MILLIGRAM
     Route: 048
     Dates: start: 20161126
  18. SENNOSIDES A AND B [Concomitant]
     Active Substance: SENNOSIDES A AND B
     Dosage: 24 MILLIGRAM
     Route: 048
     Dates: start: 20161126
  19. ZOLPIDEM TARTRATE [Concomitant]
     Active Substance: ZOLPIDEM TARTRATE
     Dosage: 5 MILLIGRAM
     Route: 048
     Dates: start: 20161205
  20. LOBUCAVIR [Concomitant]
     Active Substance: LOBUCAVIR
     Dosage: 60-120 MG
     Route: 048
     Dates: start: 20161230, end: 20170111
  21. LOBUCAVIR [Concomitant]
     Active Substance: LOBUCAVIR
     Dosage: 60-120 MG
     Route: 048
     Dates: start: 20170310
  22. MEROPENEM [Concomitant]
     Active Substance: MEROPENEM
     Dosage: 2 GRAM
     Route: 065
     Dates: start: 20161230, end: 20170112
  23. DORIPENEM MONOHYDRATE [Concomitant]
     Active Substance: DORIPENEM MONOHYDRATE
     Dosage: 0.5 GRAM
     Route: 065
     Dates: start: 20170113, end: 20170118
  24. LENOGRASTIM [Concomitant]
     Active Substance: LENOGRASTIM
     Dosage: 100 MILLIGRAM
     Route: 065
     Dates: start: 20170106, end: 20170114
  25. LENOGRASTIM [Concomitant]
     Active Substance: LENOGRASTIM
     Dosage: 180 MILLIGRAM
     Route: 065
     Dates: start: 20170302
  26. GRANISETRON [Concomitant]
     Active Substance: GRANISETRON
     Dosage: 3 MILLIGRAM
     Route: 065
     Dates: start: 20161124, end: 20161130
  27. GRANISETRON [Concomitant]
     Active Substance: GRANISETRON
     Dosage: 3 MILLIGRAM
     Route: 065
     Dates: start: 20170106, end: 20170107
  28. GRANISETRON [Concomitant]
     Active Substance: GRANISETRON
     Dosage: 3 MILLIGRAM
     Route: 065
     Dates: start: 20170204, end: 20170210
  29. GRANISETRON [Concomitant]
     Active Substance: GRANISETRON
     Dosage: 3 MILLIGRAM
     Route: 065
     Dates: start: 20170302, end: 20170305

REACTIONS (13)
  - Disease progression [Not Recovered/Not Resolved]
  - Transformation to acute myeloid leukaemia [Not Recovered/Not Resolved]
  - White blood cell count decreased [Recovered/Resolved]
  - Febrile neutropenia [Recovered/Resolved]
  - Febrile neutropenia [Recovering/Resolving]
  - C-reactive protein increased [Recovering/Resolving]
  - C-reactive protein increased [Recovering/Resolving]
  - Platelet count decreased [Recovered/Resolved]
  - Platelet count decreased [Recovered/Resolved]
  - Insomnia [Recovering/Resolving]
  - Constipation [Recovering/Resolving]
  - Pyrexia [Recovering/Resolving]
  - Pyrexia [Recovering/Resolving]

NARRATIVE: CASE EVENT DATE: 20160915
